FAERS Safety Report 21639713 (Version 1)
Quarter: 2022Q4

REPORT INFORMATION
  Report Type: Spontaneous
  Country: CN (occurrence: None)
  Receive Date: 20221124
  Receipt Date: 20221124
  Transmission Date: 20230113
  Serious: Yes (Other)
  Sender: FDA-Public Use
  Company Number: 2022A382262

PATIENT
  Age: 2871 Week
  Sex: Male
  Weight: 52 kg

DRUGS (4)
  1. DURVALUMAB [Suspect]
     Active Substance: DURVALUMAB
     Indication: Immunochemotherapy
     Route: 041
     Dates: start: 20221014, end: 20221014
  2. IRINOTECAN HYDROCHLORIDE [Suspect]
     Active Substance: IRINOTECAN HYDROCHLORIDE
     Indication: Chemotherapy
     Route: 041
     Dates: start: 20221014, end: 20221014
  3. SODIUM CHLORIDE [Concomitant]
     Active Substance: SODIUM CHLORIDE
     Indication: Vehicle solution use
     Route: 041
     Dates: start: 20221014, end: 20221014
  4. SODIUM CHLORIDE [Concomitant]
     Active Substance: SODIUM CHLORIDE
     Indication: Vehicle solution use
     Route: 041
     Dates: start: 20221014, end: 20221014

REACTIONS (1)
  - Full blood count decreased [Recovering/Resolving]

NARRATIVE: CASE EVENT DATE: 20221104
